FAERS Safety Report 18690411 (Version 5)
Quarter: 2022Q4

REPORT INFORMATION
  Report Type: Other
  Country: BE (occurrence: None)
  Receive Date: 20210101
  Receipt Date: 20221226
  Transmission Date: 20230112
  Serious: No
  Sender: FDA-Public Use
  Company Number: BE-ROCHE-2741984

PATIENT
  Age: 28 Year
  Sex: Female
  Weight: 66 kg

DRUGS (11)
  1. OCRELIZUMAB [Suspect]
     Active Substance: OCRELIZUMAB
     Indication: Relapsing-remitting multiple sclerosis
     Dosage: VISIT 2?300 MG/250 ML
     Route: 042
     Dates: start: 20200630, end: 20200630
  2. OCRELIZUMAB [Suspect]
     Active Substance: OCRELIZUMAB
     Dosage: VISIT 4?300 MG/250 ML
     Route: 042
     Dates: start: 20201022, end: 20201022
  3. CHOLECALCIFEROL [Concomitant]
     Active Substance: CHOLECALCIFEROL
     Indication: Vitamin D deficiency
     Dosage: 1 AMPULE
     Route: 048
     Dates: start: 201412
  4. PANTOPRAZOLE SODIUM [Concomitant]
     Active Substance: PANTOPRAZOLE SODIUM
     Indication: Premedication
     Route: 048
     Dates: start: 20200630, end: 20200630
  5. PANTOPRAZOLE SODIUM [Concomitant]
     Active Substance: PANTOPRAZOLE SODIUM
     Route: 048
     Dates: start: 20201022, end: 20201022
  6. SOLU-MEDROL [Concomitant]
     Active Substance: METHYLPREDNISOLONE SODIUM SUCCINATE
     Indication: Premedication
     Route: 042
     Dates: start: 20200630, end: 20200630
  7. SOLU-MEDROL [Concomitant]
     Active Substance: METHYLPREDNISOLONE SODIUM SUCCINATE
     Route: 042
     Dates: start: 20201022, end: 20201022
  8. PARACETAMOL FRESENIUS [Concomitant]
     Indication: Premedication
     Route: 042
     Dates: start: 20200630, end: 20200630
  9. PARACETAMOL FRESENIUS [Concomitant]
     Route: 042
     Dates: start: 20201022, end: 20201022
  10. CETIRIZINE [Concomitant]
     Active Substance: CETIRIZINE HYDROCHLORIDE
     Indication: Premedication
     Route: 048
     Dates: start: 20200630, end: 20200630
  11. CETIRIZINE [Concomitant]
     Active Substance: CETIRIZINE HYDROCHLORIDE
     Route: 048
     Dates: start: 20201022, end: 20201022

REACTIONS (1)
  - COVID-19 [Recovered/Resolved]

NARRATIVE: CASE EVENT DATE: 20201227
